FAERS Safety Report 8972967 (Version 1)
Quarter: 2012Q4

REPORT INFORMATION
  Report Type: 
  Country: CO (occurrence: CO)
  Receive Date: 20121219
  Receipt Date: 20121219
  Transmission Date: 20130627
  Serious: Yes (Hospitalization, Other)
  Sender: FDA-Public Use
  Company Number: CO-AMGEN-COLSP2012081403

PATIENT
  Age: 41 Year
  Sex: Female

DRUGS (1)
  1. ENBREL [Suspect]
     Indication: PSORIASIS
     Dosage: 2 blisters, weekly
     Route: 058
     Dates: start: 2010, end: 20121116

REACTIONS (2)
  - Immunosuppression [Unknown]
  - Guillain-Barre syndrome [Not Recovered/Not Resolved]
